FAERS Safety Report 23723851 (Version 1)
Quarter: 2024Q2

REPORT INFORMATION
  Report Type: Spontaneous
  Country: JP (occurrence: JP)
  Receive Date: 20240409
  Receipt Date: 20240409
  Transmission Date: 20240716
  Serious: Yes (Other)
  Sender: FDA-Public Use
  Company Number: JP-SUN PHARMACEUTICAL INDUSTRIES LTD-2024RR-441399

PATIENT
  Age: 36 Year
  Sex: Female

DRUGS (4)
  1. ARIPIPRAZOLE [Interacting]
     Active Substance: ARIPIPRAZOLE
     Indication: Acute stress disorder
     Dosage: 6 MILLIGRAM/NGHT
     Route: 065
  2. RISPERIDONE [Interacting]
     Active Substance: RISPERIDONE
     Indication: Acute stress disorder
     Dosage: 2 MILLIGRAM, UNK
     Route: 065
  3. GUANFACINE [Interacting]
     Active Substance: GUANFACINE
     Indication: Attention deficit hyperactivity disorder
     Dosage: 2 MILLIGRAM/NIGHT
     Route: 065
  4. GUANFACINE [Interacting]
     Active Substance: GUANFACINE
     Dosage: 3 MILLIGRAM, UNK
     Route: 065

REACTIONS (2)
  - Bradycardia [Unknown]
  - Drug interaction [Unknown]
